FAERS Safety Report 6645946-9 (Version None)
Quarter: 2010Q1

REPORT INFORMATION
  Report Type: 
  Country: None (occurrence: None)
  Receive Date: 20100323
  Receipt Date: 20100319
  Transmission Date: 20100710
  Serious: Yes (Death, Other)
  Sender: FDA-Public Use
  Company Number: PHEH2009US17613

PATIENT
  Sex: Male

DRUGS (10)
  1. EXJADE [Suspect]
     Indication: MYELODYSPLASTIC SYNDROME
     Dosage: 750 MG DAILY
     Route: 048
     Dates: start: 20091015
  2. EXJADE [Suspect]
     Indication: IRON OVERLOAD
  3. LISINOPRIL [Concomitant]
     Dosage: 10 MG, QD
     Route: 048
  4. PRILOSEC [Concomitant]
     Dosage: 20 MG, QD
     Route: 048
  5. BABY ASPIRIN [Concomitant]
     Dosage: 81 MG, QD
     Route: 048
  6. ALBUTEROL [Concomitant]
     Dosage: BID PRN
  7. INSULIN [Concomitant]
     Dosage: SLIDE SCALE
  8. VITAMIN B COMPLEX CAP [Concomitant]
  9. STOOL SOFTENER [Concomitant]
     Dosage: UNK
  10. FINACEA [Concomitant]
     Dosage: UNK

REACTIONS (16)
  - ANXIETY [None]
  - BLOOD GLUCOSE INCREASED [None]
  - CARDIAC FAILURE [None]
  - DEATH [None]
  - DEPRESSION [None]
  - DYSPNOEA [None]
  - FALL [None]
  - FATIGUE [None]
  - FEAR OF DEATH [None]
  - FRACTURE [None]
  - LIVER FUNCTION TEST ABNORMAL [None]
  - MUSCULAR WEAKNESS [None]
  - MUSCULOSKELETAL DISCOMFORT [None]
  - RENAL FAILURE [None]
  - SKELETAL INJURY [None]
  - WEIGHT INCREASED [None]
